FAERS Safety Report 18468251 (Version 1)
Quarter: 2020Q4

REPORT INFORMATION
  Report Type: Spontaneous
  Country: US (occurrence: US)
  Receive Date: 20201104
  Receipt Date: 20201104
  Transmission Date: 20210114
  Serious: Yes (Death)
  Sender: FDA-Public Use
  Company Number: None

PATIENT
  Age: 46 Year
  Sex: Male

DRUGS (10)
  1. OXYBUTYININ [Concomitant]
  2. BUPROPION. [Concomitant]
     Active Substance: BUPROPION
  3. GABAPENTIN. [Concomitant]
     Active Substance: GABAPENTIN
  4. FETANYL [Concomitant]
  5. CAPECITABINE. [Suspect]
     Active Substance: CAPECITABINE
     Indication: RECTAL CANCER
     Route: 048
     Dates: start: 20200625, end: 20201023
  6. TAMSULOSIN [Concomitant]
     Active Substance: TAMSULOSIN
  7. CAPECITABINE. [Suspect]
     Active Substance: CAPECITABINE
     Indication: RECTAL CANCER
     Route: 048
     Dates: start: 20200625, end: 20201023
  8. ZOLPIDEM [Concomitant]
     Active Substance: ZOLPIDEM TARTRATE
  9. ATORVASTATIN [Concomitant]
     Active Substance: ATORVASTATIN
  10. FEROSUL [Concomitant]
     Active Substance: FERROUS SULFATE

REACTIONS (1)
  - Death [None]

NARRATIVE: CASE EVENT DATE: 20201023
